FAERS Safety Report 13142230 (Version 9)
Quarter: 2025Q1

REPORT INFORMATION
  Report Type: Report from Study
  Country: CA (occurrence: CA)
  Receive Date: 20170124
  Receipt Date: 20250325
  Transmission Date: 20250409
  Serious: Yes (Hospitalization, Other)
  Sender: TAKEDA
  Company Number: CA-TAKEDA-2017TUS001307

PATIENT
  Age: 64 Year
  Sex: Male
  Weight: 122 kg

DRUGS (51)
  1. VEDOLIZUMAB [Suspect]
     Active Substance: VEDOLIZUMAB
     Indication: Crohn^s disease
  2. VEDOLIZUMAB [Suspect]
     Active Substance: VEDOLIZUMAB
  3. VEDOLIZUMAB [Suspect]
     Active Substance: VEDOLIZUMAB
     Dosage: 300 MILLIGRAM, Q4WEEKS
     Dates: start: 20190327
  4. VEDOLIZUMAB [Suspect]
     Active Substance: VEDOLIZUMAB
  5. VEDOLIZUMAB [Suspect]
     Active Substance: VEDOLIZUMAB
  6. VEDOLIZUMAB [Suspect]
     Active Substance: VEDOLIZUMAB
  7. VEDOLIZUMAB [Suspect]
     Active Substance: VEDOLIZUMAB
  8. DEXILANT [Suspect]
     Active Substance: DEXLANSOPRAZOLE
     Indication: Product used for unknown indication
  9. PANTOPRAZOLE SODIUM [Suspect]
     Active Substance: PANTOPRAZOLE SODIUM
     Indication: Product used for unknown indication
  10. ADVAIR HFA [Concomitant]
     Active Substance: FLUTICASONE PROPIONATE\SALMETEROL XINAFOATE
     Dosage: 25 MICROGRAM, BID
     Dates: start: 20160705, end: 20170223
  11. ADVAIR HFA [Concomitant]
     Active Substance: FLUTICASONE PROPIONATE\SALMETEROL XINAFOATE
  12. ALENDRONATE SODIUM [Concomitant]
     Active Substance: ALENDRONATE SODIUM
     Dosage: 70 MILLIGRAM, 1/WEEK
     Dates: start: 20160705, end: 20170508
  13. ATORVASTATIN [Concomitant]
     Active Substance: ATORVASTATIN
     Dosage: 20 MILLIGRAM, QD
     Dates: start: 20160705, end: 20170508
  14. FUROSEMIDE [Concomitant]
     Active Substance: FUROSEMIDE
     Dosage: 20 MILLIGRAM, QD
     Dates: start: 20160927, end: 20170508
  15. FUROSEMIDE [Concomitant]
     Active Substance: FUROSEMIDE
     Dosage: 80 MILLIGRAM, BID
  16. VITAMIN B12 [Concomitant]
     Active Substance: CYANOCOBALAMIN
     Dosage: 1200 MICROGRAM, QD
     Dates: start: 20160705, end: 20170508
  17. MESALAMINE [Concomitant]
     Active Substance: MESALAMINE
     Dosage: 1200 MILLIGRAM, QD
     Dates: start: 20140613, end: 20170330
  18. PREDNISONE [Concomitant]
     Active Substance: PREDNISONE
  19. NITROGLYCERIN [Concomitant]
     Active Substance: NITROGLYCERIN
  20. PREGABALIN [Concomitant]
     Active Substance: PREGABALIN
     Dosage: 50 MILLIGRAM, QD
     Dates: start: 20160705, end: 20170508
  21. ASPIRIN [Concomitant]
     Active Substance: ASPIRIN
  22. Pro-Bisoprolol [Concomitant]
  23. Pro Ramipril [Concomitant]
  24. PANTOPRAZOLE [Concomitant]
     Active Substance: PANTOPRAZOLE
     Dates: start: 20161221, end: 20170508
  25. SPIRONOLACTONE [Concomitant]
     Active Substance: SPIRONOLACTONE
     Dosage: 25 MILLIGRAM, QD
     Dates: start: 20160705, end: 20170508
  26. ACETAMINOPHEN\TRAMADOL HYDROCHLORIDE [Concomitant]
     Active Substance: ACETAMINOPHEN\TRAMADOL HYDROCHLORIDE
     Indication: Pain
  27. VITAMIN D [Concomitant]
     Active Substance: VITAMIN D NOS
  28. HYDROMORPHONE [Concomitant]
     Active Substance: HYDROMORPHONE
  29. OXAZEPAM [Concomitant]
     Active Substance: OXAZEPAM
     Dates: start: 20160705, end: 20160830
  30. LOPRESSOR [Concomitant]
     Active Substance: METOPROLOL TARTRATE
     Indication: Blood pressure abnormal
  31. ASPIRIN [Concomitant]
     Active Substance: ASPIRIN
     Indication: Anticoagulant therapy
     Dates: start: 20160705, end: 20170508
  32. VITAMIN D3 [Concomitant]
     Active Substance: CHOLECALCIFEROL
     Dosage: 10000 INTERNATIONAL UNIT, 1/WEEK
     Dates: start: 20161221, end: 20170508
  33. Teva ramipril/hctz [Concomitant]
     Dosage: 2.5 MILLIGRAM, QD
     Dates: start: 20170404, end: 20170508
  34. SPIRIVA [Concomitant]
     Active Substance: TIOTROPIUM BROMIDE MONOHYDRATE
     Dosage: 18 MICROGRAM, QD
     Dates: start: 20160705, end: 20170502
  35. ACETAMINOPHEN [Concomitant]
     Active Substance: ACETAMINOPHEN
     Indication: Premedication
     Dosage: 325 MILLIGRAM, QID
     Dates: start: 20160705, end: 20160830
  36. ACETAMINOPHEN [Concomitant]
     Active Substance: ACETAMINOPHEN
  37. CALCIUM CARBONATE [Concomitant]
     Active Substance: CALCIUM CARBONATE
     Dosage: 500 MILLIGRAM, QD
     Dates: start: 20161221, end: 20170508
  38. DOCUSATE SODIUM [Concomitant]
     Active Substance: DOCUSATE SODIUM
     Dosage: 200 MILLIGRAM, BID
     Dates: start: 20160705, end: 20160801
  39. FERROUS SULFATE [Concomitant]
     Active Substance: FERROUS SULFATE
  40. ENTRESTO [Concomitant]
     Active Substance: SACUBITRIL\VALSARTAN
  41. CALCIUM [Concomitant]
     Active Substance: CALCIUM
     Dosage: 500 MILLIGRAM, QD
  42. TRAMADOL HYDROCHLORIDE [Concomitant]
     Active Substance: TRAMADOL HYDROCHLORIDE
  43. POTASSIUM [Concomitant]
     Active Substance: POTASSIUM
  44. Apo dapagliflozin [Concomitant]
  45. CLINDAMYCIN [Concomitant]
     Active Substance: CLINDAMYCIN
  46. TRAMADOL [Concomitant]
     Active Substance: TRAMADOL
  47. ALBUTEROL [Concomitant]
     Active Substance: ALBUTEROL
     Dosage: UNK, QID
  48. ALLOPURINOL [Concomitant]
     Active Substance: ALLOPURINOL
  49. FINASTERIDE [Concomitant]
     Active Substance: FINASTERIDE
  50. APIXABAN [Concomitant]
     Active Substance: APIXABAN
     Dosage: 5 MILLIGRAM, BID
  51. METOPROLOL [Concomitant]
     Active Substance: METOPROLOL

REACTIONS (8)
  - Pneumonia [Recovered/Resolved]
  - Influenza [Unknown]
  - Cellulitis [Recovered/Resolved]
  - Localised infection [Recovering/Resolving]
  - Limb injury [Recovering/Resolving]
  - Blood pressure inadequately controlled [Unknown]
  - Nasopharyngitis [Recovering/Resolving]
  - Off label use [Unknown]

NARRATIVE: CASE EVENT DATE: 20161201
